FAERS Safety Report 10376088 (Version 2)
Quarter: 2014Q3

REPORT INFORMATION
  Report Type: Report from Study
  Country: US (occurrence: US)
  Receive Date: 20140811
  Receipt Date: 20140903
  Transmission Date: 20150326
  Serious: Yes (Hospitalization)
  Sender: FDA-Public Use
  Company Number: US-BRISTOL-MYERS SQUIBB COMPANY-21284187

PATIENT
  Age: 41 Year
  Sex: Female
  Weight: 90.4 kg

DRUGS (1)
  1. IPILIMUMAB [Suspect]
     Active Substance: IPILIMUMAB
     Indication: SQUAMOUS CELL CARCINOMA
     Dosage: 884MG?LAST DOSE:17JUL14?OVER 90 MINUTES Q12 WKS?05JUN14-
     Route: 042
     Dates: start: 20140605

REACTIONS (1)
  - Hypercalcaemia [Not Recovered/Not Resolved]

NARRATIVE: CASE EVENT DATE: 20140731
